FAERS Safety Report 23462666 (Version 4)
Quarter: 2024Q2

REPORT INFORMATION
  Report Type: Spontaneous
  Country: CN (occurrence: CN)
  Receive Date: 20240131
  Receipt Date: 20240404
  Transmission Date: 20240715
  Serious: Yes (Other)
  Sender: FDA-Public Use
  Company Number: CN-Merck Healthcare KGaA-2024003981

PATIENT
  Age: 71 Year
  Sex: Male
  Weight: 86 kg

DRUGS (21)
  1. ERBITUX [Suspect]
     Active Substance: CETUXIMAB
     Indication: Rectal cancer
     Dosage: 1000 MG, 2/M
     Route: 042
     Dates: start: 20230529, end: 20240104
  2. INVESTIGATIONAL PRODUCT [Suspect]
     Active Substance: INVESTIGATIONAL PRODUCT
     Indication: Rectal cancer
     Dosage: 900 MG, UNKNOWN
     Route: 048
     Dates: start: 20230225, end: 20230311
  3. INVESTIGATIONAL PRODUCT [Suspect]
     Active Substance: INVESTIGATIONAL PRODUCT
     Dosage: 900 MG, UNKNOWN
     Route: 048
     Dates: start: 20230312, end: 20230516
  4. INVESTIGATIONAL PRODUCT [Suspect]
     Active Substance: INVESTIGATIONAL PRODUCT
     Dosage: 600 MG, UNKNOWN
     Route: 048
     Dates: start: 20230529, end: 20230607
  5. INVESTIGATIONAL PRODUCT [Suspect]
     Active Substance: INVESTIGATIONAL PRODUCT
     Dosage: 450 MG, UNKNOWN
     Route: 048
     Dates: start: 20230713, end: 20230724
  6. INVESTIGATIONAL PRODUCT [Suspect]
     Active Substance: INVESTIGATIONAL PRODUCT
     Dosage: 450 MG, UNKNOWN
     Route: 048
     Dates: start: 20230907, end: 20230914
  7. INVESTIGATIONAL PRODUCT [Suspect]
     Active Substance: INVESTIGATIONAL PRODUCT
     Dosage: 300 MG, UNKNOWN
     Route: 048
     Dates: start: 20231018, end: 20231027
  8. INVESTIGATIONAL PRODUCT [Suspect]
     Active Substance: INVESTIGATIONAL PRODUCT
     Dosage: 300 MG, UNKNOWN
     Route: 048
     Dates: start: 20231124, end: 20231204
  9. INVESTIGATIONAL PRODUCT [Suspect]
     Active Substance: INVESTIGATIONAL PRODUCT
     Dosage: 300 MG, UNKNOWN
     Route: 048
     Dates: start: 20240104, end: 20240111
  10. HERBALS\DIAMMONIUM GLYCYRRHIZINATE [Concomitant]
     Active Substance: HERBALS\DIAMMONIUM GLYCYRRHIZINATE
     Indication: Alanine aminotransferase increased
     Dosage: 50 MG, UNK
     Route: 048
     Dates: start: 20230509, end: 20230915
  11. HERBALS\DIAMMONIUM GLYCYRRHIZINATE [Concomitant]
     Active Substance: HERBALS\DIAMMONIUM GLYCYRRHIZINATE
     Indication: Aspartate aminotransferase increased
     Dosage: 150 MG, UNK
     Route: 048
     Dates: start: 20231108, end: 20231222
  12. SILIBININ [Concomitant]
     Active Substance: SILIBININ
     Indication: Alanine aminotransferase increased
     Dosage: .2 G, UNK
     Route: 048
     Dates: start: 20230916, end: 20231016
  13. SILIBININ [Concomitant]
     Active Substance: SILIBININ
     Indication: Aspartate aminotransferase increased
     Dosage: .2 G, UNK
     Route: 048
     Dates: start: 20231124, end: 20231222
  14. MAGNESIUM ISOGLYCYRRHIZINATE [Concomitant]
     Active Substance: MAGNESIUM ISOGLYCYRRHIZINATE
     Indication: Alanine aminotransferase increased
     Dosage: 0.9 G, UNKNOWN
     Route: 065
     Dates: start: 20230421, end: 20230428
  15. MAGNESIUM ISOGLYCYRRHIZINATE [Concomitant]
     Active Substance: MAGNESIUM ISOGLYCYRRHIZINATE
     Dosage: UNK UNK, UNKNOWN (50 MG/VIAL)
     Route: 065
     Dates: start: 20230429, end: 20230627
  16. MAGNESIUM ISOGLYCYRRHIZINATE [Concomitant]
     Active Substance: MAGNESIUM ISOGLYCYRRHIZINATE
     Dosage: 40 ML, UNKNOWN
     Route: 041
     Dates: start: 20230916, end: 20230920
  17. PHOSPHOLIPID [Concomitant]
     Active Substance: PHOSPHOLIPID
     Indication: Alanine aminotransferase increased
     Dosage: 697.5 UNK (232.5 MG/VIAL)
     Route: 041
     Dates: start: 20230916, end: 20230920
  18. PHOSPHOLIPID [Concomitant]
     Active Substance: PHOSPHOLIPID
     Indication: Aspartate aminotransferase increased
     Dosage: 232.5 MG, UNK
     Route: 065
     Dates: start: 20230421, end: 20230627
  19. A TUO MO LAN [Concomitant]
     Indication: Alanine aminotransferase increased
     Dosage: .1 G, UNK
     Route: 065
     Dates: start: 20230429, end: 20230627
  20. A TUO MO LAN [Concomitant]
     Indication: Aspartate aminotransferase increased
     Dosage: .1 G, UNK
     Route: 065
     Dates: start: 20230509, end: 20230915
  21. A TUO MO LAN [Concomitant]
     Dosage: 0.9 UNK
     Route: 065
     Dates: start: 20230421, end: 20230428

REACTIONS (3)
  - Alanine aminotransferase increased [Recovered/Resolved]
  - Off label use [Unknown]
  - Aspartate aminotransferase increased [Recovered/Resolved]

NARRATIVE: CASE EVENT DATE: 20230724
